FAERS Safety Report 12780577 (Version 2)
Quarter: 2016Q4

REPORT INFORMATION
  Report Type: Spontaneous
  Country: US (occurrence: US)
  Receive Date: 20160926
  Receipt Date: 20161026
  Transmission Date: 20170207
  Serious: Yes (Hospitalization)
  Sender: FDA-Public Use
  Company Number: US-PFIZER INC-2016445027

PATIENT
  Sex: Male

DRUGS (1)
  1. VANTIN [Suspect]
     Active Substance: CEFPODOXIME PROXETIL
     Dosage: UNK

REACTIONS (2)
  - Agitation [Unknown]
  - Intentional product misuse [Unknown]
